FAERS Safety Report 18897537 (Version 1)
Quarter: 2021Q1

REPORT INFORMATION
  Report Type: Spontaneous
  Country: RU (occurrence: RU)
  Receive Date: 20210215
  Receipt Date: 20210215
  Transmission Date: 20210420
  Serious: Yes (Other)
  Sender: FDA-Public Use
  Company Number: RU-VALIDUS PHARMACEUTICALS LLC-RU-2021VAL000080

PATIENT

DRUGS (1)
  1. FUROSEMIDE. [Suspect]
     Active Substance: FUROSEMIDE
     Indication: PRODUCT USED FOR UNKNOWN INDICATION
     Dosage: 100?140 MG PER DAY
     Route: 065

REACTIONS (8)
  - Lymphocytic infiltration [Unknown]
  - Dermatitis allergic [Unknown]
  - Blister [Unknown]
  - Lymphorrhoea [Unknown]
  - Biopsy skin abnormal [Unknown]
  - Skin erosion [Unknown]
  - Pustule [Unknown]
  - Skin necrosis [Unknown]
